FAERS Safety Report 15499909 (Version 1)
Quarter: 2018Q4

REPORT INFORMATION
  Report Type: Spontaneous
  Country: FR (occurrence: FR)
  Receive Date: 20181015
  Receipt Date: 20181015
  Transmission Date: 20190205
  Serious: Yes (Hospitalization)
  Sender: FDA-Public Use
  Company Number: PHHY2018FR122554

PATIENT
  Age: 45 Year
  Sex: Female

DRUGS (5)
  1. PRAMIPEXOLE. [Suspect]
     Active Substance: PRAMIPEXOLE
     Indication: DEPRESSION
     Dosage: 2.1 MG, QD
     Route: 048
     Dates: start: 20170825, end: 20180228
  2. THERALENE [Suspect]
     Active Substance: TRIMEPRAZINE
     Indication: INSOMNIA
     Dosage: 80 GTT, QD
     Route: 048
     Dates: start: 20170608, end: 20180108
  3. NARDIL [Interacting]
     Active Substance: PHENELZINE SULFATE
     Dosage: 45 MG, QD
     Route: 048
     Dates: start: 20180106
  4. NARDIL [Interacting]
     Active Substance: PHENELZINE SULFATE
     Indication: DEPRESSION
     Dosage: 52.5 MG, QD
     Route: 048
     Dates: start: 20171228, end: 20180105
  5. PREGABALINE [Interacting]
     Active Substance: PREGABALIN
     Indication: DEPRESSION
     Dosage: 600 MG, UNK
     Route: 048
     Dates: start: 20170428

REACTIONS (5)
  - Vertigo [Recovering/Resolving]
  - Myoclonus [Recovering/Resolving]
  - Sleep disorder [Recovered/Resolved]
  - Myalgia [Recovering/Resolving]
  - Orthostatic hypotension [Recovered/Resolved]

NARRATIVE: CASE EVENT DATE: 201710
